FAERS Safety Report 14193238 (Version 3)
Quarter: 2019Q1

REPORT INFORMATION
  Report Type: Spontaneous
  Country: US (occurrence: US)
  Receive Date: 20171116
  Receipt Date: 20190111
  Transmission Date: 20190417
  Serious: Yes (Death, Hospitalization)
  Sender: FDA-Public Use
  Company Number: US-BIOGEN-2010BI011406

PATIENT
  Age: 60 Year
  Sex: Male
  Weight: 63.56 kg

DRUGS (4)
  1. CYMBALTA [Concomitant]
     Active Substance: DULOXETINE HYDROCHLORIDE
     Indication: NEUROPATHY PERIPHERAL
     Route: 065
  2. TYSABRI [Suspect]
     Active Substance: NATALIZUMAB
     Route: 065
     Dates: end: 20100416
  3. TYSABRI [Suspect]
     Active Substance: NATALIZUMAB
     Indication: MULTIPLE SCLEROSIS
     Route: 042
     Dates: start: 20100317, end: 20100406
  4. TIZANIDINE. [Concomitant]
     Active Substance: TIZANIDINE
     Indication: MUSCLE SPASMS
     Route: 065

REACTIONS (10)
  - Pneumonia aspiration [Fatal]
  - Pleural effusion [Unknown]
  - Blood pressure abnormal [Unknown]
  - Mental status changes [Unknown]
  - Staphylococcal infection [Unknown]
  - Urinary tract infection [Recovered/Resolved]
  - Multiple sclerosis [Fatal]
  - Weight decreased [Unknown]
  - Clostridium difficile infection [Fatal]
  - Hypotension [Unknown]

NARRATIVE: CASE EVENT DATE: 20100323
